FAERS Safety Report 6413038-X (Version None)
Quarter: 2009Q4

REPORT INFORMATION
  Report Type: 
  Country: None (occurrence: None)
  Receive Date: 20091023
  Receipt Date: 20091023
  Transmission Date: 20100525
  Serious: Yes (Other)
  Sender: FDA-Public Use
  Company Number: None

PATIENT
  Age: 48 Year
  Sex: Female
  Weight: 72.5755 kg

DRUGS (12)
  1. MICONAZOLE FROM EQUATE [Suspect]
     Indication: ERYTHEMA
     Dosage: 3 DOSES EVERY DAY/ONE DOSE
     Dates: start: 20090902
  2. MICONAZOLE FROM EQUATE [Suspect]
     Indication: PRURITUS
     Dosage: 3 DOSES EVERY DAY/ONE DOSE
     Dates: start: 20090902
  3. MICONAZOLE FROM EQUATE [Suspect]
     Indication: RASH
     Dosage: 3 DOSES EVERY DAY/ONE DOSE
     Dates: start: 20090902
  4. MICONAZOLE FROM EQUATE [Suspect]
     Indication: SWELLING
     Dosage: 3 DOSES EVERY DAY/ONE DOSE
     Dates: start: 20090902
  5. MICONAZOLE FROM EQUATE [Suspect]
     Indication: ERYTHEMA
     Dosage: 3 DOSES EVERY DAY/ONE DOSE
     Dates: start: 20090903
  6. MICONAZOLE FROM EQUATE [Suspect]
     Indication: PRURITUS
     Dosage: 3 DOSES EVERY DAY/ONE DOSE
     Dates: start: 20090903
  7. MICONAZOLE FROM EQUATE [Suspect]
     Indication: RASH
     Dosage: 3 DOSES EVERY DAY/ONE DOSE
     Dates: start: 20090903
  8. MICONAZOLE FROM EQUATE [Suspect]
     Indication: SWELLING
     Dosage: 3 DOSES EVERY DAY/ONE DOSE
     Dates: start: 20090903
  9. MICONAZOLE FROM EQUATE [Suspect]
     Indication: ERYTHEMA
     Dosage: 3 DOSES EVERY DAY/ONE DOSE
     Dates: start: 20090904
  10. MICONAZOLE FROM EQUATE [Suspect]
     Indication: PRURITUS
     Dosage: 3 DOSES EVERY DAY/ONE DOSE
     Dates: start: 20090904
  11. MICONAZOLE FROM EQUATE [Suspect]
     Indication: RASH
     Dosage: 3 DOSES EVERY DAY/ONE DOSE
     Dates: start: 20090904
  12. MICONAZOLE FROM EQUATE [Suspect]
     Indication: SWELLING
     Dosage: 3 DOSES EVERY DAY/ONE DOSE
     Dates: start: 20090904

REACTIONS (4)
  - ARTHRALGIA [None]
  - MOVEMENT DISORDER [None]
  - NERVOUS SYSTEM DISORDER [None]
  - PAIN [None]
